FAERS Safety Report 24097528 (Version 1)
Quarter: 2024Q3

REPORT INFORMATION
  Report Type: Report from Study
  Country: US (occurrence: US)
  Receive Date: 20240716
  Receipt Date: 20240716
  Transmission Date: 20241017
  Serious: Yes (Other)
  Sender: BAXTER
  Company Number: US-BAXTER-2024BAX021542

PATIENT
  Age: 13 Year
  Sex: Male
  Weight: 47.4 kg

DRUGS (6)
  1. CYCLOPHOSPHAMIDE [Suspect]
     Active Substance: CYCLOPHOSPHAMIDE
     Indication: Hodgkin^s disease
     Dosage: 600 MG/M2, QCYCLE, OVER 30-60 MIN ON DAYS 1-2 OF EVERY 21-DAY CYCLE, 4 DOSES, FIRST COURSE (AS PART
     Route: 042
     Dates: start: 20190130, end: 20190403
  2. DOXORUBICIN [Suspect]
     Active Substance: DOXORUBICIN
     Indication: Hodgkin^s disease
     Dosage: 25 MG/M2, QCYCLE, BOLUS OVER 1-5 MIN OR BY INTERMITTENT INFUSION OVER 1-15 MIN ON DAYS 1 AND 2, FIRS
     Route: 040
     Dates: start: 20190130, end: 20190403
  3. BRENTUXIMAB VEDOTIN [Suspect]
     Active Substance: BRENTUXIMAB VEDOTIN
     Indication: Hodgkin^s disease
     Dosage: 1.8 MG/KG (MAX. DOSE 180 MG), QCYCLE, OVER 30 MINUTES ON DAY 1, 4 DOSES, LAST TOTAL DOSE AMOUNT 85.3
     Route: 042
     Dates: start: 20190130, end: 20190403
  4. VINCRISTINE SULFATE [Suspect]
     Active Substance: VINCRISTINE SULFATE
     Indication: Hodgkin^s disease
     Dosage: 1.4 MG/M2 (MAX. DOSE 2.8 MG), QCYCLE, IV PUSH OVER 1 MIN OR INFUSION ON DAY 8, (AS PART OF ABVE-PC)
     Route: 042
     Dates: start: 20190130, end: 20190403
  5. ETOPOSIDE [Suspect]
     Active Substance: ETOPOSIDE
     Indication: Hodgkin^s disease
     Dosage: 125 MG/M2, QCYCLE, OVER 60-120 MINUTES ON DAYS 1-3, (AS PART OF ABVE-PC)
     Route: 042
     Dates: start: 20190130, end: 20190403
  6. PREDNISONE [Suspect]
     Active Substance: PREDNISONE
     Indication: Hodgkin^s disease
     Dosage: 20 MG/M2, QCYCLE, BID ON DAYS 1-7, 4 DOSES, (AS PART OF ABVE-PC)
     Route: 048
     Dates: start: 20190130, end: 20190403

REACTIONS (2)
  - Delirium [Recovering/Resolving]
  - Insomnia [Recovering/Resolving]

NARRATIVE: CASE EVENT DATE: 20190418
